FAERS Safety Report 9837404 (Version 1)
Quarter: 2014Q1

REPORT INFORMATION
  Report Type: Spontaneous
  Country: US (occurrence: US)
  Receive Date: 20140123
  Receipt Date: 20140123
  Transmission Date: 20141002
  Serious: Yes (Hospitalization)
  Sender: FDA-Public Use
  Company Number: US-MYLANLABS-2014S1001085

PATIENT
  Sex: Female

DRUGS (1)
  1. CLOZAPINE TABLETS [Suspect]

REACTIONS (1)
  - Investigation [Not Recovered/Not Resolved]
